FAERS Safety Report 12120524 (Version 2)
Quarter: 2016Q2

REPORT INFORMATION
  Report Type: Report from Study
  Country: CA (occurrence: CA)
  Receive Date: 20160226
  Receipt Date: 20160407
  Transmission Date: 20160815
  Serious: No
  Sender: FDA-Public Use
  Company Number: CA-KADMON PHARMACEUTICALS, LLC-KAD201602-000625

PATIENT
  Age: 51 Year
  Weight: 50.35 kg

DRUGS (2)
  1. HOLKIRA PAK [Suspect]
     Active Substance: DASABUVIR\OMBITASVIR\PARITAPREVIR\RITONAVIR
     Indication: CHRONIC HEPATITIS C
     Dosage: 12.5/75/50 MG TABLET 1 AND 1 250 MG TABLET 2 A DAY
     Route: 048
     Dates: start: 20160121
  2. RIBAVIRIN. [Suspect]
     Active Substance: RIBAVIRIN
     Indication: CHRONIC HEPATITIS C
     Route: 048
     Dates: start: 20160121

REACTIONS (2)
  - Thrombosed varicose vein [Unknown]
  - Inflammation [Unknown]

NARRATIVE: CASE EVENT DATE: 20160212
